FAERS Safety Report 16737114 (Version 2)
Quarter: 2019Q3

REPORT INFORMATION
  Report Type: Spontaneous
  Country: GB (occurrence: GB)
  Receive Date: 20190823
  Receipt Date: 20190828
  Transmission Date: 20191005
  Serious: Yes (Other)
  Sender: FDA-Public Use
  Company Number: PHHY2019GB195715

PATIENT
  Sex: Male

DRUGS (1)
  1. ENTRESTO [Suspect]
     Active Substance: SACUBITRIL\VALSARTAN
     Indication: PRODUCT USED FOR UNKNOWN INDICATION
     Dosage: UNK
     Route: 065

REACTIONS (7)
  - Cholestasis [Unknown]
  - Alanine aminotransferase increased [Unknown]
  - Abdominal symptom [Unknown]
  - Gastrointestinal carcinoma [Unknown]
  - Liver injury [Unknown]
  - Gamma-glutamyltransferase increased [Unknown]
  - Liver function test abnormal [Unknown]
